FAERS Safety Report 20757333 (Version 9)
Quarter: 2022Q2

REPORT INFORMATION
  Report Type: Report from Study
  Country: CN (occurrence: CN)
  Receive Date: 20220427
  Receipt Date: 20220621
  Transmission Date: 20220721
  Serious: Yes (Life-Threatening, Hospitalization)
  Sender: FDA-Public Use
  Company Number: CN-TAKEDA-2022TUS026493

PATIENT
  Age: 49 Year
  Sex: Male
  Weight: 52 kg

DRUGS (6)
  1. BRENTUXIMAB VEDOTIN [Suspect]
     Active Substance: BRENTUXIMAB VEDOTIN
     Indication: Angioimmunoblastic T-cell lymphoma
     Dosage: 90 MILLIGRAM, 3/WEEK
     Route: 041
     Dates: start: 20220107
  2. GEMCITABINE HYDROCHLORIDE [Suspect]
     Active Substance: GEMCITABINE HYDROCHLORIDE
     Indication: Lymphoma
     Dosage: 1.6 GRAM
     Route: 042
     Dates: start: 20220107, end: 20220107
  3. OXALIPLATIN [Suspect]
     Active Substance: OXALIPLATIN
     Indication: Lymphoma
     Dosage: 160 MILLIGRAM
     Route: 042
     Dates: start: 20220107, end: 20220107
  4. ETOPOSIDE [Suspect]
     Active Substance: ETOPOSIDE
     Indication: Lymphoma
     Dosage: 75 MILLIGRAM, QD
     Route: 042
     Dates: start: 20220107, end: 20220110
  5. TIGECYCLINE [Concomitant]
     Active Substance: TIGECYCLINE
     Indication: White blood cell count decreased
     Dosage: 50 MILLIGRAM, BID
     Route: 042
     Dates: start: 20220103, end: 20220108
  6. TIGECYCLINE [Concomitant]
     Active Substance: TIGECYCLINE
     Indication: White blood cell count decreased

REACTIONS (5)
  - White blood cell count decreased [Recovered/Resolved]
  - Platelet count decreased [Not Recovered/Not Resolved]
  - Hyponatraemia [Recovered/Resolved]
  - Lymphocyte count decreased [Recovered/Resolved]
  - Off label use [Unknown]

NARRATIVE: CASE EVENT DATE: 20220107
